FAERS Safety Report 5779758-5 (Version None)
Quarter: 2008Q2

REPORT INFORMATION
  Report Type: 
  Country: None (occurrence: None)
  Receive Date: 20080617
  Receipt Date: 20080606
  Transmission Date: 20081010
  Serious: Yes (Hospitalization)
  Sender: FDA-Public Use
  Company Number: 2008AL006603

PATIENT
  Age: 79 Year
  Sex: Female

DRUGS (7)
  1. DICLOFENAC SODIUM [Suspect]
     Indication: BACK PAIN
     Dosage: TOP
     Route: 061
     Dates: start: 20080521, end: 20080522
  2. AMLODIPINE [Concomitant]
  3. LISINOPRIL [Concomitant]
  4. BENDROFLUMETHIAZIDE [Concomitant]
  5. CANDESARTAN [Concomitant]
  6. OMEPRAZOLE [Concomitant]
  7. ACETAMINOPHEN [Concomitant]

REACTIONS (2)
  - DYSPNOEA [None]
  - SWOLLEN TONGUE [None]
